FAERS Safety Report 19009216 (Version 1)
Quarter: 2021Q1

REPORT INFORMATION
  Report Type: Spontaneous
  Country: US (occurrence: US)
  Receive Date: 20210315
  Receipt Date: 20210315
  Transmission Date: 20210420
  Serious: Yes (Hospitalization)
  Sender: FDA-Public Use
  Company Number: US-CELGENEUS-USA-20210303018

PATIENT
  Age: 68 Year
  Sex: Female

DRUGS (7)
  1. COPAXONE [Concomitant]
     Active Substance: GLATIRAMER ACETATE
     Indication: MULTIPLE SCLEROSIS
     Route: 058
     Dates: start: 19900101, end: 20200923
  2. IBUPROFEN. [Concomitant]
     Active Substance: IBUPROFEN
     Indication: MYALGIA
     Route: 048
  3. ZYRTEC [Concomitant]
     Active Substance: CETIRIZINE HYDROCHLORIDE
     Indication: INSOMNIA
     Route: 048
  4. ZEPOSIA [Suspect]
     Active Substance: OZANIMOD HYDROCHLORIDE
     Indication: MULTIPLE SCLEROSIS
     Dosage: .92 MILLIGRAM
     Route: 048
     Dates: start: 20201116
  5. LUNA HERBAL SUPPLEMENT [Concomitant]
     Indication: INSOMNIA
     Route: 048
  6. ZYRTEC [Concomitant]
     Active Substance: CETIRIZINE HYDROCHLORIDE
     Indication: MULTIPLE ALLERGIES
  7. AMOXICILLIN. [Concomitant]
     Active Substance: AMOXICILLIN
     Indication: DENTAL CARE
     Route: 048

REACTIONS (8)
  - Generalised tonic-clonic seizure [Unknown]
  - Swelling [Unknown]
  - Fatigue [Unknown]
  - Ear pain [Unknown]
  - Nausea [Unknown]
  - Nasal congestion [Unknown]
  - Tooth infection [Unknown]
  - Insomnia [Unknown]

NARRATIVE: CASE EVENT DATE: 202101
